FAERS Safety Report 8879111 (Version 1)
Quarter: 2012Q4

REPORT INFORMATION
  Report Type: Spontaneous
  Country: US (occurrence: None)
  Receive Date: 20121031
  Receipt Date: 20121031
  Transmission Date: 20130627
  Serious: No
  Sender: FDA-Public Use
  Company Number: None

PATIENT
  Age: 63 Year
  Sex: Male
  Weight: 86.1 kg

DRUGS (2)
  1. FUROSEMIDE [Suspect]
     Indication: HYPERTENSION
     Route: 048
     Dates: start: 20121005, end: 20121015
  2. GLIPIZIDE [Suspect]
     Indication: NON-INSULIN-DEPENDENT DIABETES MELLITUS
     Route: 048
     Dates: start: 20081219, end: 20121015

REACTIONS (2)
  - Renal failure acute [None]
  - Hypoglycaemia [None]
